FAERS Safety Report 9394504 (Version 1)
Quarter: 2013Q3

REPORT INFORMATION
  Report Type: Spontaneous
  Country: SK (occurrence: SK)
  Receive Date: 20130711
  Receipt Date: 20130711
  Transmission Date: 20140515
  Serious: Yes (Hospitalization)
  Sender: FDA-Public Use
  Company Number: PHHY2013SK072863

PATIENT
  Age: 55 Year
  Sex: Female

DRUGS (1)
  1. LEPONEX [Suspect]
     Dosage: 100 MG, UNK
     Route: 048

REACTIONS (2)
  - Accidental exposure to product [Unknown]
  - Somnolence [Unknown]
